FAERS Safety Report 21855069 (Version 5)
Quarter: 2023Q2

REPORT INFORMATION
  Report Type: Spontaneous
  Country: US (occurrence: US)
  Receive Date: 20230112
  Receipt Date: 20230613
  Transmission Date: 20230722
  Serious: No
  Sender: FDA-Public Use
  Company Number: US-PFIZER INC-2020492659

PATIENT
  Age: 57 Year
  Sex: Female
  Weight: 87.075 kg

DRUGS (3)
  1. CHANTIX [Suspect]
     Active Substance: VARENICLINE TARTRATE
     Indication: Tobacco abuse
     Dosage: 0.5 MG, ONCE DAILY ON DAYS 1-3
     Route: 048
  2. CHANTIX [Suspect]
     Active Substance: VARENICLINE TARTRATE
     Indication: Smoking cessation therapy
     Dosage: 0.5 MG, TWICE DAILY ON DAYS 4-7
     Route: 048
  3. CHANTIX [Suspect]
     Active Substance: VARENICLINE TARTRATE
     Dosage: 1 MG, ONCE DAILY FROM DAY 8
     Route: 048

REACTIONS (1)
  - Blood pressure abnormal [Unknown]
